FAERS Safety Report 14930862 (Version 1)
Quarter: 2018Q2

REPORT INFORMATION
  Report Type: Spontaneous
  Country: US (occurrence: US)
  Receive Date: 20180524
  Receipt Date: 20180524
  Transmission Date: 20180711
  Serious: No
  Sender: FDA-Public Use
  Company Number: US-BAUSCH-BL-2018-006341

PATIENT
  Age: 88 Year
  Sex: Female
  Weight: 52.21 kg

DRUGS (3)
  1. PREDNISOLONE. [Concomitant]
     Active Substance: PREDNISOLONE
     Indication: POSTOPERATIVE CARE
     Dosage: IN THE LEFT EYE
     Route: 047
  2. PROLENSA [Suspect]
     Active Substance: BROMFENAC SODIUM
     Indication: POSTOPERATIVE CARE
     Dosage: ONE DROP DAILY IN THE LEFT EYE
     Route: 047
  3. PROLENSA [Suspect]
     Active Substance: BROMFENAC SODIUM
     Dosage: 2ND DROP
     Route: 047
     Dates: start: 20180306

REACTIONS (2)
  - Wrong drug administered [Unknown]
  - No adverse event [Unknown]

NARRATIVE: CASE EVENT DATE: 20180306
